FAERS Safety Report 13465097 (Version 4)
Quarter: 2017Q4

REPORT INFORMATION
  Report Type: Spontaneous
  Country: JP (occurrence: JP)
  Receive Date: 20170421
  Receipt Date: 20171228
  Transmission Date: 20180320
  Serious: Yes (Death)
  Sender: FDA-Public Use
  Company Number: JP-SUN PHARMACEUTICAL INDUSTRIES LTD-2017RR-138379

PATIENT
  Age: 59 Year
  Sex: Female

DRUGS (2)
  1. DOCETAXEL. [Concomitant]
     Active Substance: DOCETAXEL
     Indication: ENDOMETRIAL CANCER STAGE I
     Dosage: UNK
     Route: 065
     Dates: start: 200710
  2. CARBOPLATIN. [Suspect]
     Active Substance: CARBOPLATIN
     Indication: ENDOMETRIAL CANCER STAGE I
     Dosage: UNK
     Route: 065
     Dates: start: 200710

REACTIONS (3)
  - Myelodysplastic syndrome [Fatal]
  - Myeloid leukaemia [Fatal]
  - 5q minus syndrome [Fatal]
